FAERS Safety Report 19354824 (Version 1)
Quarter: 2021Q2

REPORT INFORMATION
  Report Type: Report from Study
  Country: None (occurrence: SE)
  Receive Date: 20210602
  Receipt Date: 20210602
  Transmission Date: 20210717
  Serious: Yes (Hospitalization, Other)
  Sender: FDA-Public Use
  Company Number: SE-ABBVIE-21K-150-3926681-00

PATIENT
  Sex: Male

DRUGS (2)
  1. DUODOPA [Suspect]
     Active Substance: CARBIDOPA\LEVODOPA
     Indication: PARKINSON^S DISEASE
     Dosage: THERAPY DURATION: REMAINS AT 16H
     Route: 050
     Dates: start: 20171207
  2. DUODOPA [Suspect]
     Active Substance: CARBIDOPA\LEVODOPA

REACTIONS (4)
  - Gait disturbance [Not Recovered/Not Resolved]
  - Cerebrovascular accident [Unknown]
  - Walking aid user [Not Recovered/Not Resolved]
  - Speech disorder [Not Recovered/Not Resolved]

NARRATIVE: CASE EVENT DATE: 2021
